FAERS Safety Report 9320812 (Version 1)
Quarter: 2013Q3

REPORT INFORMATION
  Report Type: Spontaneous
  Country: US (occurrence: None)
  Receive Date: 20130529
  Receipt Date: 20130529
  Transmission Date: 20140515
  Serious: Yes (Hospitalization)
  Sender: FDA-Public Use
  Company Number: None

PATIENT
  Age: 56 Year
  Sex: Male
  Weight: 157.85 kg

DRUGS (16)
  1. BORTEZOMIB [Suspect]
     Indication: ACUTE MYELOID LEUKAEMIA
     Dosage: SQ 1.5MG/M2, DI, 4, 8, 11
     Route: 058
     Dates: start: 20130510
  2. DOXORUBICIN [Suspect]
     Indication: ACUTE MYELOID LEUKAEMIA
     Dosage: IV 40MG/M2 D4
     Route: 042
     Dates: start: 20130513
  3. ALBUTEROL [Concomitant]
  4. QVAR [Concomitant]
  5. COREG [Concomitant]
  6. DUONEB [Concomitant]
  7. ZOVIRAX [Concomitant]
  8. CIPRO [Concomitant]
  9. LANTUS [Concomitant]
  10. HUMALOG [Concomitant]
  11. NOXAFIL [Concomitant]
  12. PRAVACHOL [Concomitant]
  13. ATIVAN [Concomitant]
  14. ZOFRAN [Concomitant]
  15. COMPAZINE [Concomitant]
  16. TYLENOL/CODEINE [Concomitant]

REACTIONS (3)
  - Dyspnoea [None]
  - Chest discomfort [None]
  - Heart rate increased [None]
